FAERS Safety Report 9680124 (Version 6)
Quarter: 2014Q2

REPORT INFORMATION
  Report Type: Report from Study
  Country: CA (occurrence: CA)
  Receive Date: 20131111
  Receipt Date: 20140607
  Transmission Date: 20141212
  Serious: Yes (Other)
  Sender: FDA-Public Use
  Company Number: CA-ROCHE-1172708

PATIENT
  Age: 57 Year
  Sex: Female
  Weight: 102.1 kg

DRUGS (10)
  1. ACTEMRA [Suspect]
     Indication: RHEUMATOID ARTHRITIS
     Route: 042
     Dates: start: 20121024, end: 20130515
  2. RITUXAN [Suspect]
     Indication: RHEUMATOID ARTHRITIS
     Route: 042
     Dates: start: 20131104
  3. METHYLPREDNISOLONE [Suspect]
     Indication: PREMEDICATION
     Route: 042
     Dates: start: 20140603
  4. IMURAN [Concomitant]
     Indication: RHEUMATOID ARTHRITIS
  5. PREMARIN [Concomitant]
  6. ASA [Concomitant]
  7. SYNTHROID [Concomitant]
     Indication: HYPOTHYROIDISM
  8. ZOPICLONE [Concomitant]
  9. OMEGA 3 [Concomitant]
  10. INSULIN [Concomitant]
     Indication: DIABETES MELLITUS

REACTIONS (11)
  - Hypertension [Unknown]
  - Hepatic enzyme increased [Not Recovered/Not Resolved]
  - Stress fracture [Recovering/Resolving]
  - Herpes zoster [Not Recovered/Not Resolved]
  - Sinusitis [Recovered/Resolved]
  - Gastritis [Unknown]
  - Nasopharyngitis [Unknown]
  - Headache [Unknown]
  - Blood pressure increased [Unknown]
  - Joint swelling [Unknown]
  - Blood glucose increased [Unknown]
